FAERS Safety Report 13402273 (Version 1)
Quarter: 2017Q2

REPORT INFORMATION
  Report Type: Spontaneous
  Country: US (occurrence: US)
  Receive Date: 20170404
  Receipt Date: 20170404
  Transmission Date: 20170830
  Serious: No
  Sender: FDA-Public Use
  Company Number: US-BAYER-2017-063926

PATIENT
  Sex: Female

DRUGS (8)
  1. ACETAMINOPHEN. [Concomitant]
     Active Substance: ACETAMINOPHEN
  2. MULTIVITAMIN [Concomitant]
     Active Substance: VITAMINS
  3. CLARITIN [Suspect]
     Active Substance: LORATADINE
     Indication: VIRAL UPPER RESPIRATORY TRACT INFECTION
  4. XANAX [Concomitant]
     Active Substance: ALPRAZOLAM
  5. CLARITIN [Suspect]
     Active Substance: LORATADINE
     Indication: HYPERSENSITIVITY
     Dosage: 1 DF, QD (EVERY NIGHT)
     Route: 048
     Dates: start: 201403, end: 20170402
  6. METFORMIN [Concomitant]
     Active Substance: METFORMIN HYDROCHLORIDE
  7. VITAMIIN C [Concomitant]
     Active Substance: ASCORBIC ACID
  8. CALCIUM [CALCIUM] [Concomitant]
     Active Substance: CALCIUM

REACTIONS (2)
  - Incorrect product storage [None]
  - Drug ineffective [Unknown]

NARRATIVE: CASE EVENT DATE: 20170331
